FAERS Safety Report 8358188-6 (Version None)
Quarter: 2012Q2

REPORT INFORMATION
  Report Type: 
  Country: None (occurrence: None)
  Receive Date: 20120514
  Receipt Date: 20120507
  Transmission Date: 20120825
  Serious: Yes (Other)
  Sender: FDA-Public Use
  Company Number: US-GLAXOSMITHKLINE-A0976598A

PATIENT
  Age: 62 Year
  Sex: Male

DRUGS (7)
  1. CIPRODEX [Concomitant]
  2. ADVAIR DISKUS 100/50 [Suspect]
     Indication: ASTHMA
     Dosage: 1PUFF PER DAY
     Route: 055
  3. MEDROL [Concomitant]
  4. DEXILANT [Concomitant]
  5. LEVAQUIN [Concomitant]
  6. VALIUM [Concomitant]
  7. DOXYCYCLINE [Concomitant]

REACTIONS (2)
  - ASTHMA [None]
  - PRODUCT QUALITY ISSUE [None]
